FAERS Safety Report 6977977-3 (Version None)
Quarter: 2010Q3

REPORT INFORMATION
  Report Type: 
  Country: None (occurrence: None)
  Receive Date: 20100913
  Receipt Date: 20100903
  Transmission Date: 20110219
  Serious: Yes (Other)
  Sender: FDA-Public Use
  Company Number: CA-ABBOTT-10P-028-0668495-00

PATIENT
  Sex: Female
  Weight: 66.738 kg

DRUGS (7)
  1. HUMIRA [Suspect]
     Indication: RHEUMATOID ARTHRITIS
     Route: 058
     Dates: start: 20071031
  2. NEXIUM [Concomitant]
     Indication: PRODUCT USED FOR UNKNOWN INDICATION
     Dosage: 40 MG DAILY
     Route: 048
  3. RATIO-DOMPERIDONE [Concomitant]
     Indication: PRODUCT USED FOR UNKNOWN INDICATION
     Dosage: 10 MG DAILY
     Route: 048
  4. CALCIUM W/VITAMIN D [Concomitant]
     Indication: MINERAL SUPPLEMENTATION
     Dosage: 1000 MG + 800  IU DAILY
     Route: 048
  5. MYCARDIS PLUS [Concomitant]
     Indication: BLOOD PRESSURE
     Dosage: 80 MG DAILY
     Route: 048
  6. APO-ACETAMINOPHEN [Concomitant]
     Indication: PRODUCT USED FOR UNKNOWN INDICATION
     Dosage: 1 TAB AS NEEDED
     Route: 048
  7. RATIO-SERTRALIN [Concomitant]
     Indication: PHOBIA
     Dosage: 50 MG DAILY
     Route: 048

REACTIONS (3)
  - CHEST DISCOMFORT [None]
  - DYSPNOEA EXERTIONAL [None]
  - PULMONARY EMBOLISM [None]
